FAERS Safety Report 9964254 (Version 2)
Quarter: 2014Q1

REPORT INFORMATION
  Report Type: Report from Study
  Country: JP (occurrence: JP)
  Receive Date: 20140305
  Receipt Date: 20140305
  Transmission Date: 20141002
  Serious: Yes (Hospitalization)
  Sender: FDA-Public Use
  Company Number: PHHO2011JP09098

PATIENT
  Sex: 0

DRUGS (25)
  1. EVEROLIMUS [Suspect]
     Indication: HEPATOCELLULAR CARCINOMA
     Dosage: 7.5 MG, QD
     Route: 048
     Dates: start: 20110413, end: 20110526
  2. EVEROLIMUS [Suspect]
     Dosage: 7.5 MG, QD
     Route: 048
     Dates: start: 20110607, end: 20110730
  3. VOLTAREN [Concomitant]
     Indication: PYREXIA
     Dosage: UNK
     Dates: start: 20110526, end: 20110527
  4. GLIMICRON [Concomitant]
     Indication: DIABETES MELLITUS
     Dosage: UNK
     Route: 048
     Dates: start: 20110326
  5. BAYASPIRIN [Concomitant]
     Indication: MYOCARDIAL ISCHAEMIA
     Dosage: UNK
     Route: 048
     Dates: start: 20070814
  6. TAKEPRON [Concomitant]
     Indication: PROPHYLAXIS AGAINST GASTROINTESTINAL ULCER
     Dosage: UNK
     Route: 048
     Dates: start: 200901
  7. UNISIA [Concomitant]
     Indication: HYPERTENSION
     Dosage: UNK
     Route: 048
     Dates: start: 20101220
  8. ROHYPNOL [Concomitant]
     Indication: INSOMNIA
     Dosage: UNK
     Route: 048
     Dates: start: 20040713
  9. SOLANAX [Concomitant]
     Indication: INSOMNIA
     Dosage: UNK
     Route: 048
     Dates: start: 20080818
  10. UREPEARL [Concomitant]
     Indication: XERODERMA
     Dosage: UNK
     Dates: start: 20110413
  11. CLARITH [Concomitant]
     Indication: NASOPHARYNGITIS
     Dosage: UNK
     Route: 048
     Dates: start: 20110419, end: 20110423
  12. LEBENIN [Concomitant]
     Indication: NASOPHARYNGITIS
     Dosage: UNK
     Route: 048
     Dates: start: 20110419, end: 20110423
  13. FLAVERIC [Concomitant]
     Indication: NASOPHARYNGITIS
     Dosage: UNK
     Route: 048
     Dates: start: 20110419, end: 20110423
  14. ISODINE [Concomitant]
     Indication: NASOPHARYNGITIS
     Dosage: UNK
     Route: 048
     Dates: start: 20110419, end: 20110423
  15. ASPARA [Concomitant]
     Indication: HYPOKALAEMIA
     Dosage: UNK
     Route: 048
     Dates: start: 20110526, end: 20110527
  16. FUROSEMIDE [Concomitant]
     Indication: OEDEMA PERIPHERAL
     Dosage: UNK
     Route: 048
     Dates: start: 20110527, end: 20110527
  17. FLOMOX [Concomitant]
     Indication: INFECTION PROPHYLAXIS
     Dosage: UNK
     Route: 048
     Dates: start: 20110531
  18. SILECE [Concomitant]
     Indication: INSOMNIA
     Dosage: UNK
     Route: 048
     Dates: start: 20110531
  19. CONSTAN [Concomitant]
     Indication: INSOMNIA
     Dosage: UNK
     Route: 048
     Dates: start: 20110531
  20. AMBROXOL HYDROCHLORIDE [Concomitant]
  21. CEFTRIAXONE SODIUM [Concomitant]
  22. SOLDEM 3A [Concomitant]
  23. SOLDEM 1 [Concomitant]
  24. SOLDEM 6 [Concomitant]
  25. LACTEC [Concomitant]

REACTIONS (2)
  - Metabolic encephalopathy [Not Recovered/Not Resolved]
  - Pyrexia [Not Recovered/Not Resolved]
